FAERS Safety Report 5258653-4 (Version None)
Quarter: 2007Q1

REPORT INFORMATION
  Report Type: 
  Country: None (occurrence: None)
  Receive Date: 20070306
  Receipt Date: 20070306
  Transmission Date: 20070707
  Serious: No
  Sender: FDA-Public Use
  Company Number: None

PATIENT
  Sex: Male

DRUGS (1)
  1. DURAGESIC-75 [Suspect]
     Indication: BACK PAIN
     Dosage: 75 MCG/HR Q 48 H TRANSDERMAL
     Route: 062
     Dates: start: 20041101

REACTIONS (1)
  - DRUG INEFFECTIVE [None]
